FAERS Safety Report 25463242 (Version 1)
Quarter: 2025Q2

REPORT INFORMATION
  Report Type: Spontaneous
  Country: US (occurrence: US)
  Receive Date: 20250620
  Receipt Date: 20250620
  Transmission Date: 20250716
  Serious: No
  Sender: ABBVIE
  Company Number: US-ABBVIE-6322037

PATIENT
  Sex: Female

DRUGS (7)
  1. LINZESS [Suspect]
     Active Substance: LINACLOTIDE
     Indication: Product used for unknown indication
     Route: 048
  2. Betaine HCL [Concomitant]
     Indication: Product used for unknown indication
  3. MAGNESIUM CITRATE [Concomitant]
     Active Substance: MAGNESIUM CITRATE
     Indication: Product used for unknown indication
  4. CYANOCOBALAMIN [Concomitant]
     Active Substance: CYANOCOBALAMIN
     Indication: Anaemia megaloblastic
  5. CISAPRIDE [Concomitant]
     Active Substance: CISAPRIDE
     Indication: Product used for unknown indication
  6. MIRTAZAPINE [Concomitant]
     Active Substance: MIRTAZAPINE
     Indication: Product used for unknown indication
  7. MOSAPRIDE [Concomitant]
     Active Substance: MOSAPRIDE
     Indication: Product used for unknown indication

REACTIONS (19)
  - Mucous stools [Unknown]
  - Swelling [Unknown]
  - Nausea [Unknown]
  - Unevaluable event [Unknown]
  - Inflammation [Unknown]
  - Frequent bowel movements [Unknown]
  - Pain [Unknown]
  - Sleep disorder [Unknown]
  - Cardiovascular disorder [Unknown]
  - Gastric hypomotility [Unknown]
  - Schizoaffective disorder [Unknown]
  - Gastrointestinal pain [Unknown]
  - Somatic symptom disorder [Unknown]
  - Dissociative disorder [Unknown]
  - Post-traumatic stress disorder [Unknown]
  - Sleep terror [Unknown]
  - Breath sounds abnormal [Unknown]
  - Oesophagitis [Unknown]
  - Gastrooesophageal reflux disease [Unknown]
